FAERS Safety Report 17848877 (Version 2)
Quarter: 2021Q3

REPORT INFORMATION
  Report Type: Spontaneous
  Country: US (occurrence: US)
  Receive Date: 20200602
  Receipt Date: 20210824
  Transmission Date: 20211014
  Serious: Yes (Hospitalization, Disabling, Other)
  Sender: FDA-Public Use
  Company Number: US-SA-2020SA137519

PATIENT
  Sex: Male

DRUGS (2)
  1. ZANTAC [Suspect]
     Active Substance: RANITIDINE HYDROCHLORIDE
     Dosage: 75 MG, QD
  2. ZANTAC [Suspect]
     Active Substance: RANITIDINE HYDROCHLORIDE
     Indication: DYSPEPSIA
     Dosage: 150 MG, QD
     Dates: start: 1995, end: 2014

REACTIONS (7)
  - Injury [Unknown]
  - Quality of life decreased [Unknown]
  - Pain [Unknown]
  - Physical disability [Unknown]
  - Anxiety [Unknown]
  - Bladder cancer [Unknown]
  - Emotional distress [Unknown]

NARRATIVE: CASE EVENT DATE: 20160413
